FAERS Safety Report 22011463 (Version 1)
Quarter: 2023Q1

REPORT INFORMATION
  Report Type: Spontaneous
  Country: JP (occurrence: JP)
  Receive Date: 20230220
  Receipt Date: 20230220
  Transmission Date: 20230417
  Serious: Yes (Other)
  Sender: FDA-Public Use
  Company Number: JP-PFIZER INC-PV202300031436

PATIENT

DRUGS (2)
  1. IBRANCE [Suspect]
     Active Substance: PALBOCICLIB
     Indication: Breast cancer
     Dosage: UNK
  2. ESTRADIOL VALERATE\NORETHINDRONE ENANTHATE [Concomitant]
     Active Substance: ESTRADIOL VALERATE\NORETHINDRONE ENANTHATE
     Dosage: UNK

REACTIONS (2)
  - Biliary obstruction [Unknown]
  - Neoplasm progression [Unknown]
